FAERS Safety Report 9787293 (Version 2)
Quarter: 2013Q4

REPORT INFORMATION
  Report Type: Spontaneous
  Country: TR (occurrence: TR)
  Receive Date: 20131230
  Receipt Date: 20131230
  Transmission Date: 20140711
  Serious: Yes (Life-Threatening, Hospitalization, Other)
  Sender: FDA-Public Use
  Company Number: TR-ROCHE-1324622

PATIENT
  Age: 28 Year
  Sex: Female
  Weight: 58 kg

DRUGS (1)
  1. PEGASYS [Suspect]
     Indication: PRODUCT USED FOR UNKNOWN INDICATION
     Route: 058
     Dates: start: 20130213, end: 20131115

REACTIONS (3)
  - Generalised oedema [Not Recovered/Not Resolved]
  - Pericarditis [Not Recovered/Not Resolved]
  - Transverse sinus thrombosis [Not Recovered/Not Resolved]
